FAERS Safety Report 11506933 (Version 1)
Quarter: 2015Q3

REPORT INFORMATION
  Report Type: Spontaneous
  Country: CO (occurrence: CO)
  Receive Date: 20150915
  Receipt Date: 20150915
  Transmission Date: 20151125
  Serious: Yes (Life-Threatening)
  Sender: FDA-Public Use
  Company Number: CO-CIPLA LTD.-2015CO07265

PATIENT

DRUGS (1)
  1. NEVIRAPINE. [Suspect]
     Active Substance: NEVIRAPINE
     Indication: HIV INFECTION
     Dosage: 200 MG, UNK
     Route: 065
     Dates: start: 201502, end: 201505

REACTIONS (2)
  - Medication error [Unknown]
  - Virologic failure [Unknown]

NARRATIVE: CASE EVENT DATE: 201502
